FAERS Safety Report 4831218-1 (Version None)
Quarter: 2005Q4

REPORT INFORMATION
  Report Type: 
  Country: None (occurrence: None)
  Receive Date: 20051116
  Receipt Date: 20051109
  Transmission Date: 20060501
  Serious: Yes (Hospitalization)
  Sender: FDA-Public Use
  Company Number: S05-USA-04896-01

PATIENT
  Age: 80 Year
  Sex: Female

DRUGS (8)
  1. CELEXA [Suspect]
     Dosage: 30 MG QD PO
     Route: 048
  2. TRAZODONE [Concomitant]
  3. ASPIRIN [Concomitant]
  4. CAPTOPRIL [Concomitant]
  5. DIAZEPAM [Concomitant]
  6. GLIPIZIDE [Concomitant]
  7. NORVASC [Concomitant]
  8. MIRTAZAPINE [Concomitant]

REACTIONS (2)
  - ATRIOVENTRICULAR BLOCK [None]
  - CHEST PAIN [None]
